FAERS Safety Report 8497156 (Version 5)
Quarter: 2012Q4

REPORT INFORMATION
  Report Type: 
  Country: AU (occurrence: AU)
  Receive Date: 20120406
  Receipt Date: 20121218
  Transmission Date: 20130627
  Serious: Yes (Other)
  Sender: FDA-Public Use
  Company Number: PHHY2012AU028859

PATIENT
  Age: 76 Year
  Sex: Female

DRUGS (1)
  1. ACLASTA [Suspect]
     Indication: OSTEOPOROSIS
     Dosage: 5 mg, UNK
     Route: 042
     Dates: start: 20110121

REACTIONS (7)
  - Sinusitis [Not Recovered/Not Resolved]
  - Trigeminal neuralgia [Recovering/Resolving]
  - Nerve compression [Recovering/Resolving]
  - Facial pain [Not Recovered/Not Resolved]
  - Swelling face [Not Recovered/Not Resolved]
  - Pain in jaw [Recovering/Resolving]
  - Nausea [Unknown]
